FAERS Safety Report 7397382-8 (Version None)
Quarter: 2011Q2

REPORT INFORMATION
  Report Type: 
  Country: None (occurrence: None)
  Receive Date: 20110406
  Receipt Date: 20110406
  Transmission Date: 20111010
  Serious: No
  Sender: FDA-Public Use
  Company Number: US-PFIZER INC-2010070106

PATIENT
  Sex: Male
  Weight: 98 kg

DRUGS (9)
  1. ATENOLOL [Concomitant]
     Indication: HYPERTENSION
     Dosage: 50 MG, DAILY
     Route: 048
  2. ACETYLSALICYLIC ACID [Concomitant]
     Dosage: UNK
     Route: 048
  3. SERTRALINE HYDROCHLORIDE [Suspect]
     Indication: ANXIETY
     Dosage: UNK
     Route: 048
  4. SIMVASTATIN [Concomitant]
     Dosage: 20 MG DAILY
     Route: 048
  5. FINASTERIDE [Concomitant]
     Indication: PROSTATIC DISORDER
     Dosage: 5 MG, DAILY
     Route: 048
  6. LEVOXYL [Concomitant]
     Indication: THYROID DISORDER
     Dosage: 0.1 MG, DAILY
     Route: 048
  7. WARFARIN [Concomitant]
     Indication: ANTICOAGULANT THERAPY
     Dosage: 2.5 MG, DAILY
     Route: 048
  8. ACETAMINOPHEN [Concomitant]
     Indication: BACK PAIN
     Dosage: 500 MG, DAILY
     Route: 048
  9. NIFEDIPINE [Concomitant]
     Dosage: 60 MG, 2X/DAY
     Route: 048

REACTIONS (2)
  - WRONG TECHNIQUE IN DRUG USAGE PROCESS [None]
  - NIGHTMARE [None]
